FAERS Safety Report 12386896 (Version 7)
Quarter: 2024Q3

REPORT INFORMATION
  Report Type: Spontaneous
  Country: CA (occurrence: CA)
  Receive Date: 20160519
  Receipt Date: 20240813
  Transmission Date: 20241017
  Serious: Yes (Other)
  Sender: PFIZER
  Company Number: CA-PFIZER INC-2015113921

PATIENT
  Age: 16 Year

DRUGS (4)
  1. METHOTREXATE SODIUM [Suspect]
     Active Substance: METHOTREXATE SODIUM
     Indication: Acute lymphocytic leukaemia
     Dosage: 12 MG, 2X/WEEK (12 MG TWICE EACH WEEK FOR 4 WEEKS)
     Route: 037
  2. METHOTREXATE SODIUM [Suspect]
     Active Substance: METHOTREXATE SODIUM
     Dosage: 12 MG, 2X/WEEK (12 MG, TWICE-WEEKLY)
     Route: 037
  3. CYTARABINE [Concomitant]
     Active Substance: CYTARABINE
     Indication: Acute lymphocytic leukaemia
     Dosage: 40 MG, 2X/WEEK (40 MG TWICE EACH WEEK FOR 4 WEEKS)
     Route: 037
  4. CYTARABINE [Concomitant]
     Active Substance: CYTARABINE
     Dosage: 40 MG, TWICE-WEEKLY
     Route: 037

REACTIONS (12)
  - Product administration error [Not Recovered/Not Resolved]
  - Neurotoxicity [Not Recovered/Not Resolved]
  - Amnesia [Not Recovered/Not Resolved]
  - Colitis [Not Recovered/Not Resolved]
  - Gastrointestinal haemorrhage [Not Recovered/Not Resolved]
  - Memory impairment [Not Recovered/Not Resolved]
  - Product dispensing error [Not Recovered/Not Resolved]
  - Catheter site necrosis [Not Recovered/Not Resolved]
  - Medication error [Not Recovered/Not Resolved]
  - Overdose [Not Recovered/Not Resolved]
  - Haematotoxicity [Not Recovered/Not Resolved]
  - Toxicity to various agents [Not Recovered/Not Resolved]
